FAERS Safety Report 9613636 (Version 2)
Quarter: 2013Q4

REPORT INFORMATION
  Report Type: Spontaneous
  Country: CH (occurrence: None)
  Receive Date: 20131008
  Receipt Date: 20131016
  Transmission Date: 20140711
  Serious: Yes (Other)
  Sender: FDA-Public Use
  Company Number: 20130515

PATIENT
  Age: 38 Year
  Sex: Female
  Weight: 70 kg

DRUGS (3)
  1. FERINJECT [Suspect]
     Indication: IRON DEFICIENCY
     Route: 041
     Dates: start: 20130905, end: 20130905
  2. FERINJECT [Suspect]
     Indication: CROHN^S DISEASE
     Route: 041
     Dates: start: 20130905, end: 20130905
  3. AZATHIOPRINE [Concomitant]

REACTIONS (4)
  - Respiratory tract oedema [None]
  - Laryngeal oedema [None]
  - Anxiety [None]
  - Stridor [None]
